FAERS Safety Report 5745650-5 (Version None)
Quarter: 2008Q2

REPORT INFORMATION
  Report Type: 
  Country: None (occurrence: None)
  Receive Date: 20080521
  Receipt Date: 20080514
  Transmission Date: 20081010
  Serious: Yes (Other)
  Sender: FDA-Public Use
  Company Number: US-PFIZER INC-2008030305

PATIENT
  Sex: Male
  Weight: 28 kg

DRUGS (4)
  1. GENOTROPIN [Suspect]
     Indication: HYPOPITUITARISM
     Route: 058
  2. LEVOXYL [Concomitant]
     Route: 048
  3. CORTEF [Concomitant]
     Route: 048
     Dates: start: 20050801
  4. DDAVP [Concomitant]
     Route: 048
     Dates: start: 20050801

REACTIONS (2)
  - CRANIOPHARYNGIOMA [None]
  - NEOPLASM RECURRENCE [None]
